FAERS Safety Report 5503271-3 (Version None)
Quarter: 2007Q4

REPORT INFORMATION
  Report Type: 
  Country: None (occurrence: None)
  Receive Date: 20071031
  Receipt Date: 20071016
  Transmission Date: 20080405
  Serious: Yes (Hospitalization)
  Sender: FDA-Public Use
  Company Number: NZ-GENENTECH-250450

PATIENT
  Sex: Female
  Weight: 90 kg

DRUGS (1)
  1. AVASTIN [Suspect]
     Indication: DRUG USE FOR UNKNOWN INDICATION
     Dosage: 0.05 ML, UNK
     Route: 031
     Dates: start: 20070712, end: 20070712

REACTIONS (1)
  - UVEITIS [None]
